FAERS Safety Report 10043179 (Version 3)
Quarter: 2014Q2

REPORT INFORMATION
  Report Type: Report from Study
  Country: US (occurrence: US)
  Receive Date: 20140328
  Receipt Date: 20140414
  Transmission Date: 20141212
  Serious: Yes (Death, Hospitalization)
  Sender: FDA-Public Use
  Company Number: US-ROCHE-1371721

PATIENT
  Age: 78 Year
  Sex: Male

DRUGS (9)
  1. BEVACIZUMAB [Suspect]
     Indication: HEPATOCELLULAR CARCINOMA
     Dosage: MOST RECENT DOSE PRIOR TO THE SAE: 20/MAR/2014.
     Route: 058
     Dates: start: 20130815
  2. ERLOTINIB [Suspect]
     Indication: HEPATOCELLULAR CARCINOMA
     Dosage: MOST RECENT DOSE PRIOR TO THE SAE: 20/MAR/2014.
     Route: 048
     Dates: start: 20130815
  3. JANUVIA [Concomitant]
  4. ASPIRIN [Concomitant]
  5. DIGOXIN [Concomitant]
  6. GLIMEPIRIDE [Concomitant]
  7. LASIX [Concomitant]
  8. LANTUS SOLOSTAR [Concomitant]
  9. RAMIPRIL [Concomitant]

REACTIONS (2)
  - Acute respiratory distress syndrome [Fatal]
  - Pneumonia [Fatal]
